FAERS Safety Report 25654605 (Version 2)
Quarter: 2025Q4

REPORT INFORMATION
  Report Type: Spontaneous
  Country: US (occurrence: US)
  Receive Date: 20250807
  Receipt Date: 20251208
  Transmission Date: 20260117
  Serious: No
  Sender: SANOFI AVENTIS
  Company Number: US-SA-2025SA226808

PATIENT
  Age: 22 Year
  Sex: Male

DRUGS (7)
  1. ELOCTATE [Suspect]
     Active Substance: EFMOROCTOCOG ALFA
     Indication: Acquired haemophilia
     Dosage: 750 UNIT: ELOCTATE 746U\VIAL, I0 VIAL INFUS? ONE VAL 746U ALONG WITH ON? VIAL OF 3202U (3948U TOTAL)
     Route: 042
     Dates: start: 20250225
  2. ELOCTATE [Suspect]
     Active Substance: EFMOROCTOCOG ALFA
     Indication: Acquired haemophilia
     Dosage: 750 UNIT: ELOCTATE 746U\VIAL, I0 VIAL INFUS? ONE VAL 746U ALONG WITH ON? VIAL OF 3202U (3948U TOTAL)
     Route: 042
     Dates: start: 20250225
  3. ELOCTATE [Suspect]
     Active Substance: EFMOROCTOCOG ALFA
     Indication: Haemorrhage
     Dosage: 750 UNIT: ELOCTATE 746U\VIAL, I0 VIAL INFUS? ONE VAL 746U ALONG WITH ON? VIAL OF 3202U (3948U TOTAL)
     Route: 042
     Dates: start: 20250225
  4. ELOCTATE [Suspect]
     Active Substance: EFMOROCTOCOG ALFA
     Indication: Haemorrhage
     Dosage: 750 UNIT: ELOCTATE 746U\VIAL, I0 VIAL INFUS? ONE VAL 746U ALONG WITH ON? VIAL OF 3202U (3948U TOTAL)
     Route: 042
     Dates: start: 20250225
  5. ELOCTATE [Suspect]
     Active Substance: EFMOROCTOCOG ALFA
     Indication: Factor VIII deficiency
     Dosage: 500 UNIT: ELOCTATE 499 UNITS/VIAL, 10 VIALS.  INFUSE ONE VIAL OF 3474 UNITS ALONG WITH ONE VIAL OF 4
     Route: 042
  6. ELOCTATE [Suspect]
     Active Substance: EFMOROCTOCOG ALFA
     Indication: Factor VIII deficiency
     Dosage: 500 UNIT: ELOCTATE 499 UNITS/VIAL, 10 VIALS.  INFUSE ONE VIAL OF 3474 UNITS ALONG WITH ONE VIAL OF 4
     Route: 042
  7. SODIUM CHLORIDE [Concomitant]
     Active Substance: SODIUM CHLORIDE
     Dosage: 10 ML/SYRINGE

REACTIONS (3)
  - Spontaneous haemorrhage [Not Recovered/Not Resolved]
  - Pain [Unknown]
  - Pain [Unknown]

NARRATIVE: CASE EVENT DATE: 20250101
